FAERS Safety Report 4739132-7 (Version None)
Quarter: 2005Q3

REPORT INFORMATION
  Report Type: 
  Country: None (occurrence: None)
  Receive Date: 20050810
  Receipt Date: 20050523
  Transmission Date: 20060218
  Serious: No
  Sender: FDA-Public Use
  Company Number: US-GLAXOSMITHKLINE-A0555220B

PATIENT
  Sex: Female

DRUGS (1)
  1. PAXIL CR [Suspect]
     Indication: ANXIETY DISORDER
     Dosage: 12.5MG PER DAY
     Route: 048
     Dates: start: 20021220

REACTIONS (2)
  - BLOOD CHOLESTEROL INCREASED [None]
  - DRUG EXPOSURE DURING PREGNANCY [None]
